FAERS Safety Report 23182143 (Version 1)
Quarter: 2023Q4

REPORT INFORMATION
  Report Type: Spontaneous
  Country: US (occurrence: None)
  Receive Date: 20231114
  Receipt Date: 20231114
  Transmission Date: 20240109
  Serious: No
  Sender: FDA-Public Use
  Company Number: None

PATIENT
  Age: 36 Year
  Sex: Female
  Weight: 72 kg

DRUGS (1)
  1. BRIVIACT [Suspect]
     Active Substance: BRIVARACETAM
     Indication: Epilepsy
     Dates: start: 20210701

REACTIONS (13)
  - Depression [None]
  - Loss of personal independence in daily activities [None]
  - Dyspnoea [None]
  - Breath sounds abnormal [None]
  - Anxiety [None]
  - Panic attack [None]
  - Dysphagia [None]
  - Abnormal behaviour [None]
  - Mood altered [None]
  - Apathy [None]
  - Irritability [None]
  - Insomnia [None]
  - Tremor [None]
